FAERS Safety Report 9099071 (Version 1)
Quarter: 2013Q1

REPORT INFORMATION
  Report Type: Spontaneous
  Country: US (occurrence: US)
  Receive Date: 20130214
  Receipt Date: 20130214
  Transmission Date: 20140127
  Serious: No
  Sender: FDA-Public Use
  Company Number: US-TEVA-386493USA

PATIENT
  Sex: Male

DRUGS (3)
  1. NUVIGIL [Suspect]
     Indication: POOR QUALITY SLEEP
  2. NUVIGIL [Suspect]
  3. NUVIGIL [Suspect]

REACTIONS (1)
  - Urticaria [Unknown]
